FAERS Safety Report 8607326 (Version 3)
Quarter: 2013Q4

REPORT INFORMATION
  Report Type: Spontaneous
  Country: US (occurrence: US)
  Receive Date: 20120611
  Receipt Date: 20131129
  Transmission Date: 20140711
  Serious: Yes (Hospitalization, Disabling, Other)
  Sender: FDA-Public Use
  Company Number: US-ASTRAZENECA-2012SE34821

PATIENT
  Age: 51 Year
  Sex: Female
  Weight: 96.2 kg

DRUGS (11)
  1. NEXIUM [Suspect]
     Indication: GASTROOESOPHAGEAL REFLUX DISEASE
     Route: 048
     Dates: start: 20011205
  2. NEXIUM [Suspect]
     Indication: GASTROOESOPHAGEAL REFLUX DISEASE
     Route: 048
     Dates: start: 200604
  3. OMEPRAZOLE [Suspect]
     Indication: GASTROOESOPHAGEAL REFLUX DISEASE
     Route: 048
  4. OMEPRAZOLE [Suspect]
     Indication: GASTROOESOPHAGEAL REFLUX DISEASE
     Route: 048
     Dates: start: 20090331
  5. PREVACID [Concomitant]
     Indication: GASTROOESOPHAGEAL REFLUX DISEASE
     Dates: start: 20000421
  6. TUMS [Concomitant]
  7. MULTIVITAMIN [Concomitant]
  8. DOXYCYCLINE [Concomitant]
     Dates: start: 20021004
  9. QUININE SULFATE [Concomitant]
     Dates: start: 20030425
  10. LO OVRAL [Concomitant]
     Dosage: 28 TABS
     Dates: start: 20010423
  11. ORTHO TRICYCLEN [Concomitant]
     Dates: start: 20030425

REACTIONS (10)
  - Fall [Unknown]
  - Renal cyst [Unknown]
  - Ankle fracture [Unknown]
  - Ill-defined disorder [Unknown]
  - Limb crushing injury [Unknown]
  - Osteoporosis [Unknown]
  - Multiple fractures [Unknown]
  - Upper limb fracture [Unknown]
  - Arthritis [Unknown]
  - Cataract [Unknown]
